FAERS Safety Report 8361330-4 (Version None)
Quarter: 2012Q2

REPORT INFORMATION
  Report Type: 
  Country: None (occurrence: None)
  Receive Date: 20120515
  Receipt Date: 20120412
  Transmission Date: 20120825
  Serious: Yes (Other)
  Sender: FDA-Public Use
  Company Number: TW-ROCHE-1060882

PATIENT
  Age: 23 Year
  Sex: Female

DRUGS (2)
  1. OSELTAMIVIR [Suspect]
     Indication: H1N1 INFLUENZA
     Route: 048
  2. VALACYCLOVIR HYDROCHLORIDE [Concomitant]
     Indication: H1N1 INFLUENZA
     Route: 048

REACTIONS (2)
  - PLACENTAL NECROSIS [None]
  - PREGNANCY [None]
